FAERS Safety Report 13477111 (Version 3)
Quarter: 2018Q1

REPORT INFORMATION
  Report Type: Report from Study
  Country: US (occurrence: US)
  Receive Date: 20170424
  Receipt Date: 20180116
  Transmission Date: 20180508
  Serious: No
  Sender: FDA-Public Use
  Company Number: US-AMGEN-USASL2017022327

PATIENT
  Age: 60 Year
  Sex: Male

DRUGS (5)
  1. REPATHA [Suspect]
     Active Substance: EVOLOCUMAB
     Indication: GASTROOESOPHAGEAL REFLUX DISEASE
  2. REPATHA [Suspect]
     Active Substance: EVOLOCUMAB
     Indication: HYPERTENSION
  3. REPATHA [Suspect]
     Active Substance: EVOLOCUMAB
     Indication: VITAMIN D DEFICIENCY
  4. REPATHA [Suspect]
     Active Substance: EVOLOCUMAB
     Indication: UNEVALUABLE EVENT
     Dosage: 140 MG, Q2WK
     Route: 058
  5. REPATHA [Suspect]
     Active Substance: EVOLOCUMAB
     Indication: HYPERCHYLOMICRONAEMIA

REACTIONS (2)
  - Dysgeusia [Unknown]
  - Off label use [Unknown]
